FAERS Safety Report 13123934 (Version 1)
Quarter: 2017Q1

REPORT INFORMATION
  Report Type: Report from Study
  Country: CA (occurrence: CA)
  Receive Date: 20170118
  Receipt Date: 20170118
  Transmission Date: 20170428
  Serious: Yes (Other)
  Sender: FDA-Public Use
  Company Number: CA-AMGEN-CANSL2016183026

PATIENT
  Age: 71 Year
  Sex: Female
  Weight: 58.5 kg

DRUGS (2)
  1. REPATHA [Suspect]
     Active Substance: EVOLOCUMAB
     Indication: TYPE IIA HYPERLIPIDAEMIA
     Dosage: 140 MG/ML, UNK
     Route: 065
  2. CRESTOR [Concomitant]
     Active Substance: ROSUVASTATIN CALCIUM
     Dosage: UNK

REACTIONS (4)
  - Diabetes mellitus [Unknown]
  - Parathyroid tumour benign [Unknown]
  - Drug dose omission [Unknown]
  - Skin disorder [Unknown]
